FAERS Safety Report 9652292 (Version 4)
Quarter: 2014Q1

REPORT INFORMATION
  Report Type: Report from Study
  Country: GB (occurrence: GB)
  Receive Date: 20131029
  Receipt Date: 20140228
  Transmission Date: 20141002
  Serious: Yes (Hospitalization)
  Sender: FDA-Public Use
  Company Number: GB-ELI_LILLY_AND_COMPANY-GB201309009783

PATIENT
  Age: 64 Year
  Sex: Female
  Weight: 74 kg

DRUGS (5)
  1. PEMETREXED [Suspect]
     Indication: NON-SMALL CELL LUNG CANCER
     Dosage: 500 MG/M2, UNK
     Route: 042
     Dates: start: 20130918, end: 20130918
  2. PACLITAXEL [Suspect]
     Indication: NON-SMALL CELL LUNG CANCER
     Dosage: 175 MG/M2, UNK
     Route: 042
     Dates: start: 20130918, end: 20130918
  3. ZOMORPH [Concomitant]
     Indication: PAIN
     Dosage: 10 MG, BID
     Route: 048
  4. LACTULOSE [Concomitant]
     Indication: LAXATIVE SUPPORTIVE CARE
     Dosage: 10 ML, UNK
     Route: 048
  5. DICLOFENAC [Concomitant]
     Indication: PAIN
     Dosage: 50 MG, TID
     Route: 048

REACTIONS (1)
  - Neutropenia [Not Recovered/Not Resolved]
